FAERS Safety Report 17882666 (Version 1)
Quarter: 2020Q2

REPORT INFORMATION
  Report Type: Report from Study
  Country: None (occurrence: US)
  Receive Date: 20200610
  Receipt Date: 20200610
  Transmission Date: 20200714
  Serious: Yes (Other)
  Sender: FDA-Public Use
  Company Number: US-ABBVIE-20K-163-3435587-00

PATIENT
  Sex: Male

DRUGS (1)
  1. HUMIRA [Suspect]
     Active Substance: ADALIMUMAB
     Indication: CROHN^S DISEASE
     Dosage: CITRATE FREE
     Route: 058

REACTIONS (5)
  - Blood iron decreased [Unknown]
  - Drug ineffective [Not Recovered/Not Resolved]
  - Haematochezia [Not Recovered/Not Resolved]
  - Vitamin B12 decreased [Unknown]
  - Inflammatory marker increased [Unknown]
